FAERS Safety Report 15554740 (Version 2)
Quarter: 2018Q4

REPORT INFORMATION
  Report Type: Spontaneous
  Country: CH (occurrence: CH)
  Receive Date: 20181026
  Receipt Date: 20181121
  Transmission Date: 20190205
  Serious: Yes (Hospitalization, Other)
  Sender: FDA-Public Use
  Company Number: PHHY2018CH133421

PATIENT
  Sex: Female

DRUGS (1)
  1. COSENTYX [Suspect]
     Active Substance: SECUKINUMAB
     Indication: PSORIASIS
     Dosage: 300 MG, UNK
     Route: 058
     Dates: start: 20180928

REACTIONS (4)
  - Generalised erythema [Unknown]
  - Dermatitis exfoliative generalised [Unknown]
  - Pruritus generalised [Unknown]
  - Swelling [Unknown]

NARRATIVE: CASE EVENT DATE: 20180928
